FAERS Safety Report 5563870-X (Version None)
Quarter: 2007Q4

REPORT INFORMATION
  Report Type: 
  Country: None (occurrence: None)
  Receive Date: 20071217
  Receipt Date: 20070917
  Transmission Date: 20080405
  Serious: No
  Sender: FDA-Public Use
  Company Number: US-ASTRAZENECA-2007UW21870

PATIENT
  Age: 57 Year
  Sex: Male
  Weight: 88.9 kg

DRUGS (6)
  1. CRESTOR [Suspect]
     Indication: BLOOD CHOLESTEROL INCREASED
     Route: 048
  2. CRESTOR [Suspect]
     Indication: BLOOD TRIGLYCERIDES INCREASED
     Route: 048
  3. ATENOLOL [Concomitant]
  4. OMEGA [Concomitant]
  5. FISH OIL [Concomitant]
  6. CLARITIN [Concomitant]

REACTIONS (3)
  - DYSPNOEA [None]
  - HEADACHE [None]
  - INCREASED UPPER AIRWAY SECRETION [None]
